FAERS Safety Report 19433537 (Version 37)
Quarter: 2022Q4

REPORT INFORMATION
  Report Type: Report from Study
  Country: CN (occurrence: None)
  Receive Date: 20210617
  Receipt Date: 20221216
  Transmission Date: 20230113
  Serious: Yes (Life-Threatening, Hospitalization)
  Sender: FDA-Public Use
  Company Number: CN-ROCHE-2847887

PATIENT
  Age: 68 Year
  Sex: Male
  Weight: 55 kg

DRUGS (119)
  1. TIRAGOLUMAB [Suspect]
     Active Substance: TIRAGOLUMAB
     Indication: Oesophageal squamous cell carcinoma metastatic
     Dosage: 600 MG/10 ML?DATE OF MOST RECENT DOSE OF TIRAGOLUMAB PRIOR TO SAE ONSET: 04/JUN/2021
     Route: 042
     Dates: start: 20210514
  2. ATEZOLIZUMAB [Suspect]
     Active Substance: ATEZOLIZUMAB
     Indication: Oesophageal squamous cell carcinoma metastatic
     Dosage: 1200 MG/20 ML?DATE OF MOST RECENT DOSE OF ATEZOLIZUMAB PRIOR TO SAE ONSET: 04/JUN/2021.
     Route: 041
     Dates: start: 20210514
  3. ATEZOLIZUMAB [Suspect]
     Active Substance: ATEZOLIZUMAB
     Indication: Oesophageal squamous cell carcinoma metastatic
     Dosage: DATE OF MOST RECENT DOSE OF ATEZOLIZUMAB PRIOR TO SAE ONSET: 04/JUN/2021
     Route: 041
     Dates: start: 20210514
  4. PACLITAXEL [Suspect]
     Active Substance: PACLITAXEL
     Indication: Oesophageal squamous cell carcinoma metastatic
     Dosage: DATE OF MOST RECENT DOSE (273 MG) OF PACLITAXEL PRIOR TO SAE ONSET: 04/JUN/2021.
     Route: 042
     Dates: start: 20210514
  5. CISPLATIN [Suspect]
     Active Substance: CISPLATIN
     Indication: Oesophageal squamous cell carcinoma metastatic
     Dosage: DATE OF MOST RECENT DOSE (100 MG) OF CISPLATIN PRIOR TO SAE ONSET: 04/JUN/2021 60-80 MG/M2 DAY 1 OF
     Route: 042
     Dates: start: 20210514
  6. AMBROXOL HYDROCHLORIDE [Concomitant]
     Active Substance: AMBROXOL HYDROCHLORIDE
     Indication: Lung disorder
     Route: 042
     Dates: start: 20210614, end: 20210616
  7. AMBROXOL HYDROCHLORIDE [Concomitant]
     Active Substance: AMBROXOL HYDROCHLORIDE
     Route: 042
     Dates: start: 20210616, end: 20210619
  8. AMBROXOL HYDROCHLORIDE [Concomitant]
     Active Substance: AMBROXOL HYDROCHLORIDE
     Route: 042
     Dates: start: 20210619, end: 20210619
  9. AMBROXOL HYDROCHLORIDE [Concomitant]
     Active Substance: AMBROXOL HYDROCHLORIDE
     Dates: start: 20210619, end: 20210628
  10. FUROSEMIDE [Concomitant]
     Active Substance: FUROSEMIDE
     Indication: Oedema
     Dates: start: 20210515, end: 20210515
  11. FUROSEMIDE [Concomitant]
     Active Substance: FUROSEMIDE
     Dates: start: 20210615, end: 20210616
  12. FUROSEMIDE [Concomitant]
     Active Substance: FUROSEMIDE
     Dates: start: 20210604, end: 20210604
  13. FUROSEMIDE [Concomitant]
     Active Substance: FUROSEMIDE
     Dates: start: 20210625, end: 20210625
  14. POTASSIUM CHLORIDE [Concomitant]
     Active Substance: POTASSIUM CHLORIDE
     Indication: Prophylaxis
     Route: 042
     Dates: start: 20210513, end: 20210517
  15. POTASSIUM CHLORIDE [Concomitant]
     Active Substance: POTASSIUM CHLORIDE
     Route: 042
     Dates: start: 20210612, end: 20210613
  16. TROPISETRON HYDROCHLORIDE [Concomitant]
     Active Substance: TROPISETRON HYDROCHLORIDE
     Indication: Illness
     Route: 042
     Dates: start: 20210514, end: 20210514
  17. TROPISETRON HYDROCHLORIDE [Concomitant]
     Active Substance: TROPISETRON HYDROCHLORIDE
     Route: 042
     Dates: start: 20210604, end: 20210604
  18. CIMETIDINE [Concomitant]
     Active Substance: CIMETIDINE
     Indication: Antiallergic therapy
     Route: 042
     Dates: start: 20210514, end: 20210514
  19. CIMETIDINE [Concomitant]
     Active Substance: CIMETIDINE
     Route: 042
     Dates: start: 20210604, end: 20210604
  20. METOCLOPRAMIDE DIHYDROCHLORIDE [Concomitant]
     Indication: Illness
     Route: 042
     Dates: start: 20210514, end: 20210514
  21. METOCLOPRAMIDE DIHYDROCHLORIDE [Concomitant]
     Route: 042
     Dates: start: 20210604, end: 20210604
  22. DIPHENHYDRAMINE HYDROCHLORIDE [Concomitant]
     Active Substance: DIPHENHYDRAMINE HYDROCHLORIDE
     Indication: Anaphylactic reaction
     Route: 042
     Dates: start: 20210514, end: 20210514
  23. DIPHENHYDRAMINE HYDROCHLORIDE [Concomitant]
     Active Substance: DIPHENHYDRAMINE HYDROCHLORIDE
     Route: 042
     Dates: start: 20210604, end: 20210604
  24. DIPHENHYDRAMINE HYDROCHLORIDE [Concomitant]
     Active Substance: DIPHENHYDRAMINE HYDROCHLORIDE
     Dates: start: 20210606, end: 20210606
  25. DEXAMETHASONE SODIUM PHOSPHATE [Concomitant]
     Active Substance: DEXAMETHASONE SODIUM PHOSPHATE
     Indication: Antiallergic therapy
     Route: 042
     Dates: start: 20210514, end: 20210514
  26. DEXAMETHASONE SODIUM PHOSPHATE [Concomitant]
     Active Substance: DEXAMETHASONE SODIUM PHOSPHATE
     Indication: Dermatitis
     Route: 042
     Dates: start: 20210616, end: 20210616
  27. DEXAMETHASONE SODIUM PHOSPHATE [Concomitant]
     Active Substance: DEXAMETHASONE SODIUM PHOSPHATE
     Route: 042
     Dates: start: 20210604, end: 20210604
  28. DEXAMETHASONE SODIUM PHOSPHATE [Concomitant]
     Active Substance: DEXAMETHASONE SODIUM PHOSPHATE
     Route: 042
     Dates: start: 20210604, end: 20210604
  29. CEFOPERAZONE SODIUM\SULBACTAM SODIUM [Concomitant]
     Active Substance: CEFOPERAZONE SODIUM\SULBACTAM SODIUM
     Indication: Antiinflammatory therapy
     Route: 042
     Dates: start: 20210612, end: 20210612
  30. CEFOPERAZONE SODIUM\SULBACTAM SODIUM [Concomitant]
     Active Substance: CEFOPERAZONE SODIUM\SULBACTAM SODIUM
     Route: 042
     Dates: start: 20210622, end: 20210622
  31. CEFOPERAZONE SODIUM\SULBACTAM SODIUM [Concomitant]
     Active Substance: CEFOPERAZONE SODIUM\SULBACTAM SODIUM
     Route: 042
     Dates: start: 20210622, end: 20210623
  32. CEFOPERAZONE SODIUM\SULBACTAM SODIUM [Concomitant]
     Active Substance: CEFOPERAZONE SODIUM\SULBACTAM SODIUM
     Route: 042
     Dates: start: 20210623, end: 20210628
  33. MOXIFLOXACIN HYDROCHLORIDE [Concomitant]
     Active Substance: MOXIFLOXACIN HYDROCHLORIDE
     Indication: Antiinflammatory therapy
     Route: 042
     Dates: start: 20210612, end: 20210613
  34. PROPOFOL [Concomitant]
     Active Substance: PROPOFOL
     Indication: Anaesthesia
     Route: 042
     Dates: start: 20210614, end: 20210614
  35. CISATRACURIUM BESYLATE [Concomitant]
     Active Substance: CISATRACURIUM BESYLATE
     Indication: Anaesthesia
     Route: 042
     Dates: start: 20210614, end: 20210614
  36. METARAMINOL BITARTRATE [Concomitant]
     Active Substance: METARAMINOL BITARTRATE
     Indication: Hypotension
     Route: 042
     Dates: start: 20210614, end: 20210614
  37. ALBUMIN HUMAN [Concomitant]
     Active Substance: ALBUMIN HUMAN
     Dates: start: 20210614, end: 20210614
  38. ALBUMIN HUMAN [Concomitant]
     Active Substance: ALBUMIN HUMAN
     Dates: start: 20210620, end: 20210620
  39. ALBUMIN HUMAN [Concomitant]
     Active Substance: ALBUMIN HUMAN
     Dates: start: 20210615, end: 20210626
  40. IMIPENEM AND CILASTATIN SODIUM [Concomitant]
     Active Substance: CILASTATIN SODIUM\IMIPENEM
     Indication: Infection prophylaxis
     Route: 042
     Dates: start: 20210614, end: 20210615
  41. IMIPENEM AND CILASTATIN SODIUM [Concomitant]
     Active Substance: CILASTATIN SODIUM\IMIPENEM
     Route: 042
     Dates: start: 20210615, end: 20210622
  42. CALCIUM GLUCONATE [Concomitant]
     Active Substance: CALCIUM GLUCONATE
     Indication: Hypocalcaemia
     Route: 042
     Dates: start: 20210614, end: 20210614
  43. CALCIUM GLUCONATE [Concomitant]
     Active Substance: CALCIUM GLUCONATE
     Dates: start: 20210615, end: 20210615
  44. CALCIUM GLUCONATE [Concomitant]
     Active Substance: CALCIUM GLUCONATE
     Dates: start: 20210624, end: 20210624
  45. CALCIUM GLUCONATE [Concomitant]
     Active Substance: CALCIUM GLUCONATE
     Dates: start: 20210617, end: 20210617
  46. MAGNESIUM SULFATE [Concomitant]
     Active Substance: MAGNESIUM SULFATE
     Indication: Hypomagnesaemia
     Dates: start: 20210614, end: 20210614
  47. MAGNESIUM SULFATE [Concomitant]
     Active Substance: MAGNESIUM SULFATE
     Dates: start: 20210618, end: 20210618
  48. MAGNESIUM SULFATE [Concomitant]
     Active Substance: MAGNESIUM SULFATE
     Dates: start: 20210616, end: 20210617
  49. SODIUM BICARBONATE [Concomitant]
     Active Substance: SODIUM BICARBONATE
     Dates: start: 20210614, end: 20210614
  50. NOREPINEPHRINE [Concomitant]
     Active Substance: NOREPINEPHRINE
     Indication: Blood pressure measurement
     Dosage: NORTHRENEPHRINE HEAVY TARTRATE INJECTION
     Route: 042
     Dates: start: 20210614, end: 20210614
  51. NOREPINEPHRINE [Concomitant]
     Active Substance: NOREPINEPHRINE
     Route: 042
     Dates: start: 20210615, end: 20210615
  52. NOREPINEPHRINE [Concomitant]
     Active Substance: NOREPINEPHRINE
     Route: 042
     Dates: start: 20210615, end: 20210615
  53. NOREPINEPHRINE [Concomitant]
     Active Substance: NOREPINEPHRINE
     Route: 042
     Dates: start: 20210615, end: 20210615
  54. NOREPINEPHRINE [Concomitant]
     Active Substance: NOREPINEPHRINE
     Route: 042
     Dates: start: 20210616, end: 20210616
  55. NOREPINEPHRINE [Concomitant]
     Active Substance: NOREPINEPHRINE
     Route: 042
     Dates: start: 20210617, end: 20210617
  56. NOREPINEPHRINE [Concomitant]
     Active Substance: NOREPINEPHRINE
     Route: 042
     Dates: start: 20210617, end: 20210617
  57. NOREPINEPHRINE [Concomitant]
     Active Substance: NOREPINEPHRINE
     Route: 042
     Dates: start: 20210618, end: 20210618
  58. NOREPINEPHRINE [Concomitant]
     Active Substance: NOREPINEPHRINE
     Route: 042
     Dates: start: 20210619, end: 20210619
  59. NOREPINEPHRINE [Concomitant]
     Active Substance: NOREPINEPHRINE
     Route: 042
     Dates: start: 20210619, end: 20210619
  60. NOREPINEPHRINE [Concomitant]
     Active Substance: NOREPINEPHRINE
     Route: 042
     Dates: start: 20210620, end: 20210620
  61. NOREPINEPHRINE [Concomitant]
     Active Substance: NOREPINEPHRINE
     Route: 042
     Dates: start: 20210621, end: 20210621
  62. MIDAZOLAM [Concomitant]
     Active Substance: MIDAZOLAM
     Indication: Sedation
     Route: 042
     Dates: start: 20210614, end: 20210614
  63. MIDAZOLAM [Concomitant]
     Active Substance: MIDAZOLAM
     Route: 042
     Dates: start: 20210616, end: 20210616
  64. MIDAZOLAM [Concomitant]
     Active Substance: MIDAZOLAM
     Route: 042
     Dates: start: 20210616, end: 20210616
  65. MIDAZOLAM [Concomitant]
     Active Substance: MIDAZOLAM
     Route: 042
     Dates: start: 20210619, end: 20210619
  66. AMIODARONE HYDROCHLORIDE [Concomitant]
     Active Substance: AMIODARONE HYDROCHLORIDE
     Indication: Atrial fibrillation
     Dates: start: 20210615, end: 20210617
  67. AMIODARONE HYDROCHLORIDE [Concomitant]
     Active Substance: AMIODARONE HYDROCHLORIDE
     Dates: start: 20210619, end: 20210619
  68. POTASSIUM PHOSPHATE, MONOBASIC [Concomitant]
     Active Substance: POTASSIUM PHOSPHATE, MONOBASIC
     Indication: Hypophosphataemia
     Dates: start: 20210615, end: 20210621
  69. POTASSIUM PHOSPHATE, MONOBASIC [Concomitant]
     Active Substance: POTASSIUM PHOSPHATE, MONOBASIC
     Dates: start: 20210616, end: 20210616
  70. POTASSIUM PHOSPHATE, MONOBASIC [Concomitant]
     Active Substance: POTASSIUM PHOSPHATE, MONOBASIC
     Dates: start: 20210620, end: 20210620
  71. POTASSIUM PHOSPHATE, MONOBASIC [Concomitant]
     Active Substance: POTASSIUM PHOSPHATE, MONOBASIC
     Dates: start: 20210625, end: 20210625
  72. ETHAMSYLATE [Concomitant]
     Active Substance: ETHAMSYLATE
     Dates: start: 20210619, end: 20210619
  73. ARGININE HYDROCHLORIDE [Concomitant]
     Active Substance: ARGININE HYDROCHLORIDE
     Dates: start: 20210620, end: 20210620
  74. ARGININE HYDROCHLORIDE [Concomitant]
     Active Substance: ARGININE HYDROCHLORIDE
     Dates: start: 20210621, end: 20210621
  75. GLUTATHIONE [Concomitant]
     Active Substance: GLUTATHIONE
     Dates: start: 20210620, end: 20210620
  76. GLUTATHIONE [Concomitant]
     Active Substance: GLUTATHIONE
     Dates: start: 20210615, end: 20210617
  77. GLUTATHIONE [Concomitant]
     Active Substance: GLUTATHIONE
     Dates: start: 20210616, end: 20210617
  78. GLUTATHIONE [Concomitant]
     Active Substance: GLUTATHIONE
     Dates: start: 20210614, end: 20210614
  79. THROMBOPOIETIN [Concomitant]
     Active Substance: THROMBOPOIETIN
     Dosage: MEDICATION DOSE 15000 U
     Route: 042
     Dates: start: 20210614, end: 20210628
  80. THROMBOPOIETIN [Concomitant]
     Active Substance: THROMBOPOIETIN
     Route: 042
     Dates: start: 20210612
  81. THROMBOPOIETIN [Concomitant]
     Active Substance: THROMBOPOIETIN
     Dates: start: 20210607, end: 20210607
  82. OCTREOTIDE ACETATE [Concomitant]
     Active Substance: OCTREOTIDE ACETATE
     Indication: Upper gastrointestinal haemorrhage
     Route: 042
     Dates: start: 20210620, end: 20210623
  83. OCTREOTIDE ACETATE [Concomitant]
     Active Substance: OCTREOTIDE ACETATE
     Dates: start: 20210619, end: 20210623
  84. OCTREOTIDE ACETATE [Concomitant]
     Active Substance: OCTREOTIDE ACETATE
     Dates: start: 20210619, end: 20210625
  85. ENOXAPARIN SODIUM [Concomitant]
     Active Substance: ENOXAPARIN SODIUM
     Indication: Thrombosis prophylaxis
     Dates: start: 20210626, end: 20210628
  86. HEPARIN SODIUM [Concomitant]
     Active Substance: HEPARIN SODIUM
     Indication: Thrombosis prophylaxis
     Dates: start: 20210626, end: 20210628
  87. DEXTROSE [Concomitant]
     Active Substance: DEXTROSE
     Route: 042
     Dates: start: 20210615, end: 20210618
  88. HUMAN IMMUNOGLOBULIN G [Concomitant]
     Active Substance: HUMAN IMMUNOGLOBULIN G
     Route: 042
     Dates: start: 20210619, end: 20210626
  89. HUMAN IMMUNOGLOBULIN G [Concomitant]
     Active Substance: HUMAN IMMUNOGLOBULIN G
     Dates: start: 20210616, end: 20210619
  90. HUMAN RED BLOOD CELL [Concomitant]
     Active Substance: HUMAN RED BLOOD CELL
     Indication: Anaemia
     Route: 042
     Dates: start: 20210614, end: 20210614
  91. VITAMIN K1 [Concomitant]
     Active Substance: PHYTONADIONE
     Indication: Haemostasis
     Route: 042
     Dates: start: 20210614, end: 20210628
  92. VITAMIN K1 [Concomitant]
     Active Substance: PHYTONADIONE
     Route: 042
     Dates: start: 20210619, end: 20210619
  93. CEFOPERAZONE [Concomitant]
     Active Substance: CEFOPERAZONE
     Route: 042
     Dates: start: 20210612
  94. DOMPERIDONE [Concomitant]
     Active Substance: DOMPERIDONE
     Indication: Dyspepsia
     Route: 048
     Dates: start: 20210518, end: 20210527
  95. LANSOPRAZOLE [Concomitant]
     Active Substance: LANSOPRAZOLE
     Route: 048
     Dates: start: 20210518, end: 20210527
  96. LANSOPRAZOLE [Concomitant]
     Active Substance: LANSOPRAZOLE
     Route: 048
     Dates: start: 20210607, end: 20210607
  97. METOCLOPRAMIDE HYDROCHLORIDE [Concomitant]
     Active Substance: METOCLOPRAMIDE HYDROCHLORIDE
     Indication: Illness
     Route: 030
     Dates: start: 20210516, end: 20210516
  98. METOCLOPRAMIDE HYDROCHLORIDE [Concomitant]
     Active Substance: METOCLOPRAMIDE HYDROCHLORIDE
     Dates: start: 20210606, end: 20210606
  99. OMEPRAZOLE SODIUM [Concomitant]
     Active Substance: OMEPRAZOLE SODIUM
     Indication: Gastric ulcer
     Route: 042
     Dates: start: 20210516, end: 20210516
  100. OMEPRAZOLE SODIUM [Concomitant]
     Active Substance: OMEPRAZOLE SODIUM
     Route: 042
     Dates: start: 20210604, end: 20210604
  101. SODIUM CHLORIDE [Concomitant]
     Active Substance: SODIUM CHLORIDE
     Dates: start: 20210614, end: 20210614
  102. DEXMEDETOMIDINE HYDROCHLORIDE [Concomitant]
     Active Substance: DEXMEDETOMIDINE HYDROCHLORIDE
     Dates: start: 20210614, end: 20210614
  103. NITROFURAZONE [Concomitant]
     Active Substance: NITROFURAZONE
     Dates: start: 20210614, end: 20210616
  104. METOPROLOL TARTRATE [Concomitant]
     Active Substance: METOPROLOL TARTRATE
     Indication: Cardiovascular disorder
     Dates: start: 20210617, end: 20210619
  105. ESOMEPRAZOLE SODIUM [Concomitant]
     Active Substance: ESOMEPRAZOLE SODIUM
     Dates: start: 20210619, end: 20210626
  106. ESOMEPRAZOLE SODIUM [Concomitant]
     Active Substance: ESOMEPRAZOLE SODIUM
     Route: 042
     Dates: start: 20210614, end: 20210616
  107. LACTULOSE [Concomitant]
     Active Substance: LACTULOSE
     Indication: Constipation
     Dates: start: 20210617, end: 20210619
  108. NOREPINEPHRINE BITARTRATE [Concomitant]
     Active Substance: NOREPINEPHRINE BITARTRATE
     Route: 042
     Dates: start: 20210614, end: 20210614
  109. RECOMBINANT HUMAN GRANULOCYTE STIMULATING FACTOR (UNK INGREDIENTS) [Concomitant]
     Indication: White blood cell count increased
     Route: 058
     Dates: start: 20210610, end: 20210611
  110. RECOMBINANT HUMAN GRANULOCYTE STIMULATING FACTOR (UNK INGREDIENTS) [Concomitant]
     Route: 058
     Dates: start: 20210612, end: 20210613
  111. RECOMBINANT HUMAN GRANULOCYTE STIMULATING FACTOR (UNK INGREDIENTS) [Concomitant]
     Route: 058
     Dates: start: 20210612, end: 20210613
  112. RECOMBINANT HUMAN GRANULOCYTE STIMULATING FACTOR (UNK INGREDIENTS) [Concomitant]
     Route: 058
     Dates: start: 20210528, end: 20210529
  113. RECOMBINANT HUMAN GRANULOCYTE STIMULATING FACTOR (UNK INGREDIENTS) [Concomitant]
     Dates: start: 20210603, end: 20210603
  114. RECOMBINANT HUMAN GRANULOCYTE STIMULATING FACTOR (UNK INGREDIENTS) [Concomitant]
     Dates: start: 20210607, end: 20210607
  115. BUCINNAZINE HYDROCHLORIDE [Concomitant]
     Indication: Pain
     Route: 030
     Dates: start: 20210614, end: 20210614
  116. BUCINNAZINE HYDROCHLORIDE [Concomitant]
     Route: 030
     Dates: start: 20210619, end: 20210619
  117. PROMETHAZINE HYDROCHLORIDE [Concomitant]
     Active Substance: PROMETHAZINE HYDROCHLORIDE
     Dosage: GIVEN FOR PROPHYLAXIS YES
     Dates: start: 20210615, end: 20210615
  118. LINEZOLID [Concomitant]
     Active Substance: LINEZOLID
     Route: 042
     Dates: start: 20210615, end: 20210618
  119. ESOMEPRAZOLE SODIUM [Concomitant]
     Active Substance: ESOMEPRAZOLE SODIUM
     Route: 042
     Dates: start: 20210614, end: 20210616

REACTIONS (5)
  - Platelet count decreased [Recovered/Resolved]
  - Neutrophil count decreased [Recovered/Resolved]
  - Leukopenia [Recovered/Resolved]
  - Fatigue [Unknown]
  - Pneumonia [Recovering/Resolving]

NARRATIVE: CASE EVENT DATE: 20210610
